FAERS Safety Report 17499128 (Version 1)
Quarter: 2020Q1

REPORT INFORMATION
  Report Type: Report from Study
  Country: DE (occurrence: DE)
  Receive Date: 20200305
  Receipt Date: 20200305
  Transmission Date: 20200409
  Serious: Yes (Hospitalization)
  Sender: FDA-Public Use
  Company Number: DE-ROCHE-2559268

PATIENT
  Age: 4 Year
  Sex: Female
  Weight: 12 kg

DRUGS (9)
  1. FOLIC ACID. [Concomitant]
     Active Substance: FOLIC ACID
     Indication: JUVENILE IDIOPATHIC ARTHRITIS
  2. TOCILIZUMAB. [Suspect]
     Active Substance: TOCILIZUMAB
     Indication: JUVENILE IDIOPATHIC ARTHRITIS
     Route: 058
     Dates: start: 20190613
  3. FOLIC ACID. [Concomitant]
     Active Substance: FOLIC ACID
     Indication: JUVENILE IDIOPATHIC ARTHRITIS
  4. PREDNISOLONE. [Concomitant]
     Active Substance: PREDNISOLONE
     Indication: JUVENILE IDIOPATHIC ARTHRITIS
  5. FOLIC ACID. [Concomitant]
     Active Substance: FOLIC ACID
     Indication: JUVENILE IDIOPATHIC ARTHRITIS
  6. FOLIC ACID. [Concomitant]
     Active Substance: FOLIC ACID
     Indication: PROPHYLAXIS
  7. METHOTREXATE. [Suspect]
     Active Substance: METHOTREXATE
     Indication: JUVENILE IDIOPATHIC ARTHRITIS
     Route: 058
     Dates: start: 20180901, end: 20190801
  8. FERROSANOL [Concomitant]
     Active Substance: FERROUS GLUCONATE
     Indication: IRON DEFICIENCY ANAEMIA
  9. FOLIC ACID. [Concomitant]
     Active Substance: FOLIC ACID
     Indication: IRON DEFICIENCY ANAEMIA

REACTIONS (2)
  - Pneumonia [Recovered/Resolved]
  - Pleural effusion [Recovered/Resolved]

NARRATIVE: CASE EVENT DATE: 20190915
